FAERS Safety Report 6333991-2 (Version None)
Quarter: 2009Q3

REPORT INFORMATION
  Report Type: 
  Country: None (occurrence: None)
  Receive Date: 20090829
  Receipt Date: 20090626
  Transmission Date: 20100115
  Serious: No
  Sender: FDA-Public Use
  Company Number: US-ABBOTT-09P-163-0582462-00

PATIENT
  Sex: Male
  Weight: 104.42 kg

DRUGS (5)
  1. SIMCOR [Suspect]
     Indication: BLOOD CHOLESTEROL INCREASED
     Dosage: 500/20MG DAILY
     Route: 048
     Dates: start: 20090601
  2. AZMACORT [Concomitant]
     Indication: DRUG USE FOR UNKNOWN INDICATION
     Route: 055
  3. ALBUTEROL [Concomitant]
     Indication: DRUG USE FOR UNKNOWN INDICATION
     Route: 055
  4. NORVASC [Concomitant]
     Indication: HYPERTENSION
     Route: 048
  5. CITALOPRAM [Concomitant]
     Indication: DRUG USE FOR UNKNOWN INDICATION
     Route: 048

REACTIONS (2)
  - ABDOMINAL PAIN UPPER [None]
  - ASTHENIA [None]
